FAERS Safety Report 7772694-4 (Version None)
Quarter: 2011Q3

REPORT INFORMATION
  Report Type: 
  Country: None (occurrence: None)
  Receive Date: 20110922
  Receipt Date: 20100303
  Transmission Date: 20111222
  Serious: No
  Sender: FDA-Public Use
  Company Number: US-ASTRAZENECA-2009SE28550

PATIENT

DRUGS (3)
  1. ABILIFY [Concomitant]
     Dates: start: 20040212
  2. SEROQUEL [Suspect]
     Route: 048
     Dates: start: 20020101, end: 20080101
  3. WELLBUTRIN [Concomitant]
     Dates: start: 20040212

REACTIONS (2)
  - VISUAL IMPAIRMENT [None]
  - TYPE 2 DIABETES MELLITUS [None]
